FAERS Safety Report 20369482 (Version 1)
Quarter: 2022Q1

REPORT INFORMATION
  Report Type: Spontaneous
  Country: US (occurrence: None)
  Receive Date: 20220121
  Receipt Date: 20220121
  Transmission Date: 20220424
  Serious: Yes (Hospitalization)
  Sender: FDA-Public Use
  Company Number: None

PATIENT
  Age: 40 Year
  Sex: Female
  Weight: 89.8 kg

DRUGS (1)
  1. TYSABRI [Suspect]
     Active Substance: NATALIZUMAB
     Indication: Multiple sclerosis
     Dosage: FREQUENCY : MONTHLY;?
     Route: 041
     Dates: start: 20141204

REACTIONS (7)
  - Nausea [None]
  - Vomiting [None]
  - Abdominal pain lower [None]
  - Pyrexia [None]
  - Discoloured vomit [None]
  - Infusion related reaction [None]
  - Abdominal pain upper [None]

NARRATIVE: CASE EVENT DATE: 20220113
